FAERS Safety Report 19628319 (Version 2)
Quarter: 2021Q3

REPORT INFORMATION
  Report Type: Report from Study
  Country: US (occurrence: US)
  Receive Date: 20210728
  Receipt Date: 20210816
  Transmission Date: 20211014
  Serious: Yes (Hospitalization)
  Sender: FDA-Public Use
  Company Number: US-EISAI MEDICAL RESEARCH-EC-2021-095579

PATIENT
  Age: 63 Year
  Sex: Female

DRUGS (4)
  1. KEYTRUDA [Concomitant]
     Active Substance: PEMBROLIZUMAB
  2. LENVIMA [Suspect]
     Active Substance: LENVATINIB
     Indication: ENDOMETRIAL CANCER
     Route: 048
     Dates: start: 20210624, end: 20210715
  3. LENVIMA [Suspect]
     Active Substance: LENVATINIB
     Route: 048
     Dates: start: 20210729
  4. LENVIMA [Suspect]
     Active Substance: LENVATINIB
     Indication: OVARIAN CANCER
     Route: 048
     Dates: start: 202107, end: 20210728

REACTIONS (8)
  - Renal failure [Recovered/Resolved]
  - Stomatitis [Not Recovered/Not Resolved]
  - Fatigue [Unknown]
  - Nausea [Not Recovered/Not Resolved]
  - Off label use [Unknown]
  - Mucosal inflammation [Not Recovered/Not Resolved]
  - Decreased activity [Unknown]
  - Vomiting [Not Recovered/Not Resolved]

NARRATIVE: CASE EVENT DATE: 2021
